FAERS Safety Report 9139602 (Version 1)
Quarter: 2013Q1

REPORT INFORMATION
  Report Type: Spontaneous
  Country: US (occurrence: US)
  Receive Date: 20130305
  Receipt Date: 20130305
  Transmission Date: 20140127
  Serious: Yes (Other)
  Sender: FDA-Public Use
  Company Number: US-JNJFOC-20130216844

PATIENT
  Sex: Male

DRUGS (4)
  1. REMICADE [Suspect]
     Indication: CROHN^S DISEASE
     Dosage: LAST (3RD) INDUCTION DOSE
     Route: 042
     Dates: start: 20130118, end: 20130118
  2. REMICADE [Suspect]
     Indication: CROHN^S DISEASE
     Dosage: 3RD INDUCTION DOSE ON 18-JAN-2013
     Route: 042
     Dates: start: 2012
  3. STEROIDS NOS [Suspect]
     Indication: PRODUCT USED FOR UNKNOWN INDICATION
     Route: 065
  4. IMMUNOMODULATOR [Suspect]
     Indication: PRODUCT USED FOR UNKNOWN INDICATION
     Route: 065

REACTIONS (2)
  - Candida infection [Not Recovered/Not Resolved]
  - Clostridium difficile infection [Not Recovered/Not Resolved]
